FAERS Safety Report 25622362 (Version 5)
Quarter: 2025Q3

REPORT INFORMATION
  Report Type: Report from Study
  Country: CA (occurrence: CA)
  Receive Date: 20250730
  Receipt Date: 20250916
  Transmission Date: 20251020
  Serious: Yes (Death, Life-Threatening, Hospitalization)
  Sender: ABBVIE
  Company Number: CA-JNJFOC-20250726144

PATIENT
  Age: 63 Year
  Sex: Male

DRUGS (2)
  1. IMBRUVICA [Suspect]
     Active Substance: IBRUTINIB
     Indication: Chronic lymphocytic leukaemia
     Route: 048
  2. IMBRUVICA [Suspect]
     Active Substance: IBRUTINIB
     Indication: Chronic lymphocytic leukaemia
     Route: 048

REACTIONS (6)
  - Death [Fatal]
  - Cat scratch disease [Unknown]
  - Product dose omission issue [Unknown]
  - Atrial fibrillation [Unknown]
  - Off label use [Unknown]
  - Heart failure with preserved ejection fraction [Unknown]

NARRATIVE: CASE EVENT DATE: 20250814
